FAERS Safety Report 21679979 (Version 4)
Quarter: 2023Q2

REPORT INFORMATION
  Report Type: Report from Study
  Country: US (occurrence: US)
  Receive Date: 20221205
  Receipt Date: 20230421
  Transmission Date: 20230721
  Serious: Yes (Hospitalization)
  Sender: FDA-Public Use
  Company Number: US-ACADIA PHARMACEUTICALS INC.-ACA-2022-PIM-004130

PATIENT
  Age: 77 Year
  Sex: Female

DRUGS (36)
  1. NUPLAZID [Suspect]
     Active Substance: PIMAVANSERIN TARTRATE
     Indication: Parkinson^s disease psychosis
     Dosage: 34 MILLIGRAM, QD
     Route: 048
     Dates: start: 202011
  2. ASPIRIN [Concomitant]
     Active Substance: ASPIRIN
     Dosage: 81 MILLIGRAM, QD
     Route: 048
  3. LIPITOR [Concomitant]
     Active Substance: ATORVASTATIN CALCIUM
     Dosage: 20 MILLIGRAM, BY FEEDING TUBE
     Dates: start: 20221121
  4. BUSPAR [Concomitant]
     Active Substance: BUSPIRONE HYDROCHLORIDE
     Dosage: 5 MILLIGRAM, BY FEEDING TUBE ROUTE 2 TIMES A DAY
     Dates: start: 20221121
  5. VITAMIN D3 [Concomitant]
     Active Substance: CHOLECALCIFEROL
     Dosage: 50 MCG, BY MOUTH
  6. DEPAKOTE [Concomitant]
     Active Substance: DIVALPROEX SODIUM
     Dosage: 125 MILLIGRAM, 1 CPSULE BY MOUTH 3 TIMES A DAY
     Dates: start: 20221217
  7. ARICEPT [Concomitant]
     Active Substance: DONEPEZIL HYDROCHLORIDE
     Dosage: 10 MILLIGRAM, 2 TABLETS BY MOUTH NIGHTLY
     Route: 048
     Dates: start: 20220519
  8. CYMBALTA [Concomitant]
     Active Substance: DULOXETINE HYDROCHLORIDE
     Dosage: 60 MILLIGRAM, 1 CAPSULE BY MOUTH DAILY
     Route: 048
     Dates: start: 20201112
  9. ESTRACE [Concomitant]
     Active Substance: ESTRADIOL
     Dosage: 0.01%, INSERT  0.5 MG TWICE A WEEK BY VAGINAL ROUTE AT BED TIME
  10. PEPCID [Concomitant]
     Active Substance: FAMOTIDINE
     Dosage: 40 MILLIGRAM, 1 TABLET BY MOUTH DAILY FOR 3 DAYS
     Dates: start: 20210924
  11. PEPCID [Concomitant]
     Active Substance: FAMOTIDINE
     Dosage: 20 MILLIGRAM, 1 TABLET BY GASTROTOMY TUBE ROUTE DAILY
     Dates: start: 20221215
  12. ALLEGRA [Concomitant]
     Active Substance: FEXOFENADINE HYDROCHLORIDE
     Dosage: 60 MILLIGRAM
  13. DIFLUCAN [Concomitant]
     Active Substance: FLUCONAZOLE
     Dosage: 150 MILLIGRAM, TAKE 1 TABLET ORAL ON DAY 1 ANTIBIOTIC AND MAY REPEAT IN 72 HOUR
     Dates: start: 20220327
  14. NEURONTIN [Concomitant]
     Active Substance: GABAPENTIN
     Dosage: 100 MILLIGRAM, TAKE 1 CAPSULE BY MOUTH 2 TIMES A DAY
     Dates: start: 20201121
  15. NEURONTIN [Concomitant]
     Active Substance: GABAPENTIN
     Dosage: 300 MILLIGRAM
     Route: 048
     Dates: start: 20221230
  16. GLUCAGEN HYPOKIT [Concomitant]
     Active Substance: GLUCAGON HYDROCHLORIDE
     Dosage: 1 MILLIGRAM
  17. NOVOLOG [Concomitant]
     Active Substance: INSULIN ASPART
     Dosage: 100 UNIT/ML, INJECT AS DIRECTED SLIDING SCALE 10-11 UNITS AT MEAL
  18. TRESIBA [Concomitant]
     Active Substance: INSULIN DEGLUDEC
     Dosage: 100 UNIT/ML
  19. LANTUS [Concomitant]
     Active Substance: INSULIN GLARGINE
     Dosage: 100 UNIT/ML, INJECT 14 UNITS UNDER THE SKIN NIGHTLY
  20. KEPPRA [Concomitant]
     Active Substance: LEVETIRACETAM
     Dosage: 500 MILLIGRAM
     Route: 048
     Dates: start: 20171222
  21. SYNTHROID [Concomitant]
     Active Substance: LEVOTHYROXINE SODIUM
     Dosage: 125 MCG, 1 TABLET BY MOUTH ONCE DAILY
     Route: 048
     Dates: start: 20201026
  22. SYNTHROID [Concomitant]
     Active Substance: LEVOTHYROXINE SODIUM
     Dosage: 112 MCG, BY MOUTHUNK
     Route: 048
  23. PRINIVIL [Concomitant]
     Active Substance: LISINOPRIL
     Dosage: 20 MILLIGRAM, 1 TABLET BY MOUTH DAILY
     Route: 048
     Dates: start: 20201119
  24. MAGNESIUM OXIDE [Concomitant]
     Active Substance: MAGNESIUM OXIDE
     Dosage: 400 MILLIGRAM, TAKE 1 BY MOUTH
     Route: 048
  25. MYRBETRIQ [Concomitant]
     Active Substance: MIRABEGRON
     Dosage: 25 MILLIGRAM, 1 TABLET
  26. BACTROBAN [Concomitant]
     Active Substance: MUPIROCIN\MUPIROCIN CALCIUM
     Dosage: 2%, APPLY TWICE A DAY AS DIRECTED
  27. PRILOSEC [Concomitant]
     Active Substance: OMEPRAZOLE MAGNESIUM
     Dosage: 20 MILLIGRAM
     Dates: start: 20201201
  28. POTASSIUM CHLORIDE [Concomitant]
     Active Substance: POTASSIUM CHLORIDE
     Dosage: 10 MILLIGRAM, BY MOUTH DAILY
     Route: 048
  29. KLOR-CON [Concomitant]
     Active Substance: POTASSIUM CHLORIDE
     Dosage: 20 MEQ BY MOUTH DAILY
     Route: 048
  30. SEROQUEL [Concomitant]
     Active Substance: QUETIAPINE FUMARATE
     Dosage: 25 MILLIGRAM, 1 TABLET BY MOUTH TWO TIMES A DAY PATIENT TO TAKE 1TABLET AT NIGHT, MAY TAKE ONE TABLE
     Dates: start: 20220201
  31. SEROQUEL [Concomitant]
     Active Substance: QUETIAPINE FUMARATE
     Dosage: 25 MILLIGRAM, 1 TABLET BY FEEDING TUBE ORAL NIGHTLY
     Dates: start: 20221121
  32. SENOKOT [Concomitant]
     Active Substance: SENNOSIDES
     Dosage: 8.6 MG, 2 TABLETS BY FEEDING TUBE ROUTE NIGHTLY
     Dates: start: 20221121
  33. ZOCOR [Concomitant]
     Active Substance: SIMVASTATIN
     Dosage: 40 MILLIGRAM, TAKE 1 TABLET BY MOUTH EVERY EVENING AT BEDTIME
  34. SIMVASTATIN [Concomitant]
     Active Substance: SIMVASTATIN
     Dosage: 40 MG/5ML, 1 TABLET
  35. DESYREL [Concomitant]
     Active Substance: TRAZODONE HYDROCHLORIDE
     Dosage: 50 MILLIGRAM
     Dates: start: 20201201
  36. ZINC [Concomitant]
     Active Substance: ZINC
     Route: 048

REACTIONS (2)
  - COVID-19 [Recovered/Resolved]
  - Product dose omission issue [Recovered/Resolved]

NARRATIVE: CASE EVENT DATE: 20221102
